FAERS Safety Report 8292032-0 (Version None)
Quarter: 2012Q2

REPORT INFORMATION
  Report Type: 
  Country: None (occurrence: None)
  Receive Date: 20120417
  Receipt Date: 20120206
  Transmission Date: 20120825
  Serious: No
  Sender: FDA-Public Use
  Company Number: US-ASTRAZENECA-2008UW21844

PATIENT
  Age: 50 Year
  Sex: Female
  Weight: 97.1 kg

DRUGS (21)
  1. SEROQUEL [Suspect]
     Indication: THINKING ABNORMAL
     Route: 048
     Dates: end: 20100101
  2. GEODON [Concomitant]
     Dates: start: 20080901
  3. CELEXA [Concomitant]
     Dates: end: 20080919
  4. SEROQUEL [Suspect]
     Dosage: MORE THAN 800 MG
     Route: 048
  5. VALTREX [Concomitant]
  6. SEROQUEL [Suspect]
     Indication: BIPOLAR DISORDER
     Route: 048
     Dates: end: 20100101
  7. CLONOZIPAN [Concomitant]
  8. LOPID [Concomitant]
  9. SEROQUEL [Suspect]
     Dosage: MORE THAN 800 MG
     Route: 048
  10. NEXIUM [Suspect]
     Route: 048
  11. LAMICTAL [Concomitant]
  12. ASCORBIC ACID [Concomitant]
  13. THYROID SUPPLEMENT [Concomitant]
  14. LOVOXAL [Concomitant]
  15. XALATAN [Concomitant]
  16. SEROQUEL [Suspect]
     Dosage: MORE THAN 800 MG
     Route: 048
  17. CRESTOR [Suspect]
     Route: 048
  18. LIPITOR [Concomitant]
  19. KLONOPIN [Concomitant]
  20. SEROQUEL [Suspect]
     Indication: MOOD SWINGS
     Route: 048
     Dates: end: 20100101
  21. CITRUCEL [Concomitant]

REACTIONS (12)
  - PARANOIA [None]
  - WEIGHT DECREASED [None]
  - WEIGHT INCREASED [None]
  - APHASIA [None]
  - THINKING ABNORMAL [None]
  - ANXIETY [None]
  - MEMORY IMPAIRMENT [None]
  - SOMNOLENCE [None]
  - HYPOAESTHESIA [None]
  - SLEEP APNOEA SYNDROME [None]
  - CHEST PAIN [None]
  - DYSGRAPHIA [None]
